FAERS Safety Report 9103336 (Version 1)
Quarter: 2013Q1

REPORT INFORMATION
  Report Type: Spontaneous
  Country: GB (occurrence: None)
  Receive Date: 20130125
  Receipt Date: 20130125
  Transmission Date: 20140127
  Serious: Yes (Other)
  Sender: FDA-Public Use
  Company Number: 2013-00954

PATIENT
  Age: 37 Year
  Sex: Female

DRUGS (1)
  1. MIRTAZAPINE (MIRTAZAPINE) [Suspect]
     Indication: DEPRESSION
     Dates: start: 20091010

REACTIONS (11)
  - Eye swelling [None]
  - Medication error [None]
  - Withdrawal syndrome [None]
  - Cough [None]
  - Sneezing [None]
  - Rash pruritic [None]
  - Diarrhoea [None]
  - Decreased appetite [None]
  - Oropharyngeal pain [None]
  - Cough [None]
  - Pain [None]
